FAERS Safety Report 25102281 (Version 3)
Quarter: 2025Q2

REPORT INFORMATION
  Report Type: Report from Study
  Country: UY (occurrence: UY)
  Receive Date: 20250320
  Receipt Date: 20250606
  Transmission Date: 20250717
  Serious: Yes (Hospitalization)
  Sender: ABBVIE
  Company Number: UY-ABBVIE-5878012

PATIENT
  Age: 68 Year
  Sex: Female

DRUGS (1)
  1. HUMIRA [Suspect]
     Active Substance: ADALIMUMAB
     Indication: Spondylitis
     Dosage: FORM STRENGTH: 40MG/0.4ML
     Route: 058
     Dates: start: 20201014

REACTIONS (7)
  - Biopsy site unspecified abnormal [Unknown]
  - Multiple allergies [Not Recovered/Not Resolved]
  - Vitamin D decreased [Unknown]
  - Eczema [Not Recovered/Not Resolved]
  - Diarrhoea [Recovering/Resolving]
  - Sleep disorder [Not Recovered/Not Resolved]
  - Spondylitis [Recovering/Resolving]

NARRATIVE: CASE EVENT DATE: 20231201
